FAERS Safety Report 5700903-1 (Version None)
Quarter: 2008Q2

REPORT INFORMATION
  Report Type: 
  Country: None (occurrence: None)
  Receive Date: 20080410
  Receipt Date: 20080401
  Transmission Date: 20081010
  Serious: Yes (Hospitalization)
  Sender: FDA-Public Use
  Company Number: A0722169A

PATIENT
  Sex: Female

DRUGS (2)
  1. AVANDIA [Suspect]
     Route: 048
  2. UNSPECIFIED MEDICATION [Suspect]

REACTIONS (8)
  - ANOREXIA [None]
  - ASTHENIA [None]
  - DEHYDRATION [None]
  - DYSSTASIA [None]
  - FEELING JITTERY [None]
  - INSOMNIA [None]
  - MALAISE [None]
  - WEIGHT DECREASED [None]
